FAERS Safety Report 5287789-7 (Version None)
Quarter: 2007Q2

REPORT INFORMATION
  Report Type: 
  Country: None (occurrence: None)
  Receive Date: 20070402
  Receipt Date: 20070402
  Transmission Date: 20071010
  Serious: Yes (Hospitalization)
  Sender: FDA-Public Use
  Company Number: None

PATIENT
  Age: 50 Year
  Sex: Female
  Weight: 58.0604 kg

DRUGS (2)
  1. ZELNORM [Suspect]
     Indication: CONSTIPATION
     Dosage: 1 TABLET TWICE DAILY IV
     Route: 042
     Dates: start: 20030901, end: 20070330
  2. ZELNORM [Suspect]
     Indication: IRRITABLE BOWEL SYNDROME
     Dosage: 1 TABLET TWICE DAILY IV
     Route: 042
     Dates: start: 20030901, end: 20070330

REACTIONS (1)
  - DEEP VEIN THROMBOSIS [None]
